FAERS Safety Report 13917139 (Version 1)
Quarter: 2017Q3

REPORT INFORMATION
  Report Type: Spontaneous
  Country: US (occurrence: US)
  Receive Date: 20170829
  Receipt Date: 20170829
  Transmission Date: 20171127
  Serious: No
  Sender: FDA-Public Use
  Company Number: US-ALLERGAN-1710207US

PATIENT
  Age: 30 Year
  Sex: Male

DRUGS (1)
  1. ASENAPINE MALEATE - BP [Suspect]
     Active Substance: ASENAPINE MALEATE
     Indication: SCHIZOPHRENIA
     Route: 065

REACTIONS (4)
  - Weight increased [Unknown]
  - Sedation [Unknown]
  - Drug ineffective [Unknown]
  - Adverse event [Unknown]
